FAERS Safety Report 8129106-0 (Version None)
Quarter: 2012Q1

REPORT INFORMATION
  Report Type: 
  Country: None (occurrence: None)
  Receive Date: 20120210
  Receipt Date: 20111221
  Transmission Date: 20120608
  Serious: Yes (Other)
  Sender: FDA-Public Use
  Company Number: US-BRISTOL-MYERS SQUIBB COMPANY-16102576

PATIENT
  Age: 81 Year
  Sex: Female
  Weight: 49 kg

DRUGS (7)
  1. ELMIRON [Concomitant]
  2. ORENCIA [Suspect]
     Indication: RHEUMATOID ARTHRITIS
     Dosage: ORENCIA IV 12FEB2008 AND AFTER INITIAL DOSING, RECEIVED TREATMENT EVERY 4 WEEKS.15SEP2011 ON 500MG
     Route: 042
     Dates: start: 20080212
  3. SOLU-MEDROL [Concomitant]
     Dates: start: 20110620
  4. PREDNISONE [Concomitant]
     Dosage: 3  TABLETS AM AND 1 TABLET IN THE AFTERNOON
  5. METHOTREXATE [Concomitant]
     Dates: start: 20110501
  6. NAPROXEN (ALEVE) [Concomitant]
  7. NEXIUM [Concomitant]
     Dosage: D/C 1SEP2010
     Dates: start: 20110501

REACTIONS (9)
  - GASTROOESOPHAGEAL REFLUX DISEASE [None]
  - CHEST PAIN [None]
  - DYSPNOEA [None]
  - BLADDER CANCER [None]
  - BURNING SENSATION [None]
  - ERYTHEMA [None]
  - CYSTITIS [None]
  - PRURITUS [None]
  - BLOOD PRESSURE INCREASED [None]
